FAERS Safety Report 9846480 (Version 1)
Quarter: 2014Q1

REPORT INFORMATION
  Report Type: Spontaneous
  Country: US (occurrence: None)
  Receive Date: 20140123
  Receipt Date: 20140123
  Transmission Date: 20141002
  Serious: Yes (Disabling)
  Sender: FDA-Public Use
  Company Number: None

PATIENT
  Age: 59 Year
  Sex: Female
  Weight: 74.39 kg

DRUGS (2)
  1. AVELOX 400 MG BAYER [Suspect]
     Indication: BRONCHITIS CHRONIC
     Dosage: 1 TABLET  ONCE DAILY  TAKEN BY MOUTH
     Route: 048
     Dates: start: 20140109, end: 20140112
  2. AVELOX 400 MG BAYER [Suspect]
     Indication: OROPHARYNGEAL PAIN
     Dosage: 1 TABLET  ONCE DAILY  TAKEN BY MOUTH
     Route: 048
     Dates: start: 20140109, end: 20140112

REACTIONS (24)
  - Abdominal pain upper [None]
  - Hyperhidrosis [None]
  - Local swelling [None]
  - Diarrhoea [None]
  - Dysphonia [None]
  - Ocular hyperaemia [None]
  - Sensory disturbance [None]
  - Head titubation [None]
  - Dry eye [None]
  - Eye pruritus [None]
  - Headache [None]
  - Vitreous floaters [None]
  - Pollakiuria [None]
  - Micturition urgency [None]
  - Blood pressure increased [None]
  - Blood urine present [None]
  - Anxiety [None]
  - Joint crepitation [None]
  - Local swelling [None]
  - Arthralgia [None]
  - Abdominal pain upper [None]
  - Chest pain [None]
  - Flank pain [None]
  - Back pain [None]
